FAERS Safety Report 20904871 (Version 1)
Quarter: 2022Q2

REPORT INFORMATION
  Report Type: Spontaneous
  Country: US (occurrence: None)
  Receive Date: 20220601
  Receipt Date: 20220601
  Transmission Date: 20220721
  Serious: No
  Sender: FDA-Public Use
  Company Number: None

PATIENT
  Age: 65 Year
  Sex: Female
  Weight: 78.75 kg

DRUGS (8)
  1. PAXLOVID [Suspect]
     Active Substance: NIRMATRELVIR\RITONAVIR
     Indication: COVID-19
     Dosage: OTHER QUANTITY : 3 TABLET(S);?FREQUENCY : TWICE A DAY;?
     Route: 048
     Dates: start: 20220528, end: 20220528
  2. METOPROLOL [Concomitant]
     Active Substance: METOPROLOL
  3. IPRATROPIUM [Concomitant]
     Active Substance: IPRATROPIUM
  4. VITAMIN D3 [Concomitant]
     Active Substance: CHOLECALCIFEROL
  5. JWH-018 [Concomitant]
     Active Substance: JWH-018
  6. ZINC [Concomitant]
     Active Substance: ZINC
  7. COPPER [Concomitant]
     Active Substance: COPPER
  8. GLUTATHIONE [Concomitant]
     Active Substance: GLUTATHIONE

REACTIONS (3)
  - Hypersensitivity [None]
  - Somnolence [None]
  - Extrasystoles [None]

NARRATIVE: CASE EVENT DATE: 20220528
